FAERS Safety Report 6437677-5 (Version None)
Quarter: 2009Q4

REPORT INFORMATION
  Report Type: 
  Country: None (occurrence: None)
  Receive Date: 20091112
  Receipt Date: 20091104
  Transmission Date: 20100525
  Serious: Yes (Congenital Anomaly)
  Sender: FDA-Public Use
  Company Number: B0601545A

PATIENT
  Sex: Male
  Weight: 2.7 kg

DRUGS (10)
  1. COMBIVIR [Suspect]
     Indication: HIV INFECTION
     Dates: start: 20060411
  2. KIVEXA [Suspect]
     Indication: ANTIVIRAL TREATMENT
  3. KIVEXA [Suspect]
  4. NORVIR [Suspect]
     Indication: HIV INFECTION
     Dosage: 200MG PER DAY
     Dates: start: 20060411
  5. VIRAMUNE [Suspect]
     Indication: HIV INFECTION
     Dates: end: 20051225
  6. SAQUINAVIR [Suspect]
     Indication: ANTIVIRAL TREATMENT
  7. INVIRASE [Suspect]
     Indication: HIV INFECTION
     Dosage: 2000MG PER DAY
     Dates: start: 20060411
  8. EPZICOM [Suspect]
     Indication: HIV INFECTION
     Dates: end: 20051225
  9. NEVIRAPINE [Suspect]
     Indication: ANTIVIRAL TREATMENT
  10. NEVIRAPINE [Suspect]

REACTIONS (2)
  - CONGENITAL ANOMALY [None]
  - NORMAL NEWBORN [None]
